FAERS Safety Report 17906157 (Version 3)
Quarter: 2021Q2

REPORT INFORMATION
  Report Type: Spontaneous
  Country: US (occurrence: US)
  Receive Date: 20200616
  Receipt Date: 20210416
  Transmission Date: 20210717
  Serious: No
  Sender: FDA-Public Use
  Company Number: US-ASTRAZENECA-2020SE76286

PATIENT
  Sex: Female

DRUGS (2)
  1. BEVESPI AEROSPHERE [Suspect]
     Active Substance: FORMOTEROL FUMARATE\GLYCOPYRROLATE
     Indication: CHRONIC OBSTRUCTIVE PULMONARY DISEASE
     Dosage: 9/4.8UG. TWO PUFF TWICE DAILY
     Route: 055
     Dates: start: 20200604
  2. BEVESPI AEROSPHERE [Suspect]
     Active Substance: FORMOTEROL FUMARATE\GLYCOPYRROLATE
     Indication: CHRONIC OBSTRUCTIVE PULMONARY DISEASE
     Dosage: 9/4.8UG. ONE PUFF TWICE DAILY
     Route: 055
     Dates: start: 20200521

REACTIONS (2)
  - Device delivery system issue [Unknown]
  - Headache [Unknown]

NARRATIVE: CASE EVENT DATE: 20200604
